FAERS Safety Report 23065355 (Version 3)
Quarter: 2023Q4

REPORT INFORMATION
  Report Type: Spontaneous
  Country: US (occurrence: US)
  Receive Date: 20231013
  Receipt Date: 20231228
  Transmission Date: 20240110
  Serious: No
  Sender: FDA-Public Use
  Company Number: US-PFIZER INC-202300302585

PATIENT
  Age: 75 Year
  Sex: Female
  Weight: 86.168 kg

DRUGS (3)
  1. CIBINQO [Suspect]
     Active Substance: ABROCITINIB
     Indication: Eczema
     Dosage: 200 MG, DAILY
     Route: 048
     Dates: start: 202309
  2. CIBINQO [Suspect]
     Active Substance: ABROCITINIB
     Dosage: 200 MG
     Route: 048
  3. ZORYVE [Concomitant]
     Active Substance: ROFLUMILAST
     Indication: Rash
     Dosage: 0.3 %

REACTIONS (2)
  - Drug ineffective [Unknown]
  - Back pain [Unknown]
